FAERS Safety Report 8413721-0 (Version None)
Quarter: 2012Q2

REPORT INFORMATION
  Report Type: 
  Country: None (occurrence: None)
  Receive Date: 20120605
  Receipt Date: 20120530
  Transmission Date: 20120825
  Serious: Yes (Hospitalization)
  Sender: FDA-Public Use
  Company Number: IT-PFIZER INC-2012070537

PATIENT
  Age: 61 Year
  Sex: Male

DRUGS (3)
  1. ZITHROMAX [Suspect]
     Dosage: 500 MG, 1X/DAY
     Route: 048
     Dates: start: 20111020, end: 20111022
  2. ACETAMINOPHEN [Suspect]
     Dosage: 500 MG, AS NEEDED
     Route: 048
     Dates: start: 20111020
  3. VIVIN-C [Suspect]
     Dosage: 1 DF, AS NEEDED
     Route: 048
     Dates: start: 20111020

REACTIONS (2)
  - HAEMATOCHEZIA [None]
  - SYNCOPE [None]
